FAERS Safety Report 24715454 (Version 3)
Quarter: 2024Q4

REPORT INFORMATION
  Report Type: Spontaneous
  Country: IT (occurrence: IT)
  Receive Date: 20241210
  Receipt Date: 20241223
  Transmission Date: 20250114
  Serious: Yes (Other)
  Sender: ALNYLAM PHARMACEUTICALS
  Company Number: IT-ALNYLAM PHARMACEUTICALS, INC.-ALN-2024-006829

PATIENT

DRUGS (2)
  1. GIVLAARI [Suspect]
     Active Substance: GIVOSIRAN SODIUM
     Indication: Porphyria acute
     Dosage: UNK
     Route: 058
     Dates: start: 20210429, end: 20210429
  2. GIVLAARI [Suspect]
     Active Substance: GIVOSIRAN SODIUM
     Dosage: UNK
     Route: 058
     Dates: start: 20240115, end: 20240115

REACTIONS (10)
  - Intraductal papillary mucinous neoplasm [Unknown]
  - Hyperamylasaemia [Unknown]
  - Hyperlipasaemia [Unknown]
  - Pancreas divisum [Unknown]
  - Blood creatinine increased [Unknown]
  - Muscular weakness [Unknown]
  - Limb discomfort [Unknown]
  - Muscle spasms [Unknown]
  - Pancreatic cyst [Unknown]
  - Renal cyst [Unknown]

NARRATIVE: CASE EVENT DATE: 20240101
